FAERS Safety Report 5230826-6 (Version None)
Quarter: 2007Q1

REPORT INFORMATION
  Report Type: 
  Country: None (occurrence: None)
  Receive Date: 20070205
  Receipt Date: 20070205
  Transmission Date: 20070707
  Serious: Yes (Life-Threatening, Hospitalization)
  Sender: FDA-Public Use
  Company Number: None

PATIENT
  Age: 66 Year
  Sex: Male
  Weight: 85.4 kg

DRUGS (1)
  1. WARFARIN SODIUM [Suspect]

REACTIONS (1)
  - GASTROINTESTINAL HAEMORRHAGE [None]
